FAERS Safety Report 5375724-2 (Version None)
Quarter: 2007Q2

REPORT INFORMATION
  Report Type: 
  Country: None (occurrence: None)
  Receive Date: 20070628
  Receipt Date: 20070612
  Transmission Date: 20071010
  Serious: Yes (Hospitalization)
  Sender: FDA-Public Use
  Company Number: 2007BI008763

PATIENT
  Age: 61 Year
  Sex: Male
  Weight: 74.8435 kg

DRUGS (1)
  1. AVONEX [Suspect]
     Indication: MULTIPLE SCLEROSIS
     Dosage: 30 UG; QW; IM
     Route: 030
     Dates: start: 20030101

REACTIONS (3)
  - BRAIN NEOPLASM [None]
  - COGNITIVE DISORDER [None]
  - LUNG CANCER METASTATIC [None]
